FAERS Safety Report 5863978-5 (Version None)
Quarter: 2008Q3

REPORT INFORMATION
  Report Type: 
  Country: None (occurrence: None)
  Receive Date: 20080829
  Receipt Date: 20080818
  Transmission Date: 20090109
  Serious: Yes (Hospitalization, Other)
  Sender: FDA-Public Use
  Company Number: AT-ABBOTT-08P-009-0471341-00

PATIENT
  Age: 88 Year
  Sex: Male
  Weight: 63 kg

DRUGS (17)
  1. ZEMPLAR [Suspect]
     Indication: HYPERPARATHYROIDISM SECONDARY
     Route: 042
     Dates: start: 20071129
  2. LACTOBACILLUS ACIDOPHILUS [Concomitant]
     Indication: DIARRHOEA
     Route: 048
     Dates: start: 20070921
  3. CARENAL [Concomitant]
     Indication: VITAMIN SUPPLEMENTATION
     Route: 048
     Dates: start: 20070924
  4. DIOVAN HCT [Concomitant]
     Indication: HYPERTENSION
     Route: 048
     Dates: start: 20070907
  5. SELEGILINE HCL [Concomitant]
     Indication: PARKINSON'S DISEASE
     Route: 048
     Dates: start: 20070907
  6. MADOPAR [Concomitant]
     Indication: PARKINSON'S DISEASE
     Dosage: 125/12.5MG
     Dates: start: 20070907
  7. PIRACETAM [Concomitant]
     Indication: SUPPLEMENTATION THERAPY
     Route: 048
     Dates: start: 20070907
  8. PANTOPRAZOLE [Concomitant]
     Indication: GASTROOESOPHAGEAL REFLUX DISEASE
     Dates: start: 20070907
  9. CLOPIDOGREL [Concomitant]
     Indication: SUPPLEMENTATION THERAPY
     Dosage: 1 DOSAGE FORM
     Dates: start: 20070907
  10. CLOPIDOGREL [Concomitant]
     Indication: CORONARY ARTERY DISEASE
  11. SIMVASTATIN [Concomitant]
     Indication: HYPERLIPIDAEMIA
     Dates: start: 20070907
  12. ROPINIROLE HYDROCHLORIDE [Concomitant]
     Indication: PARKINSON'S DISEASE
     Dates: start: 20070907
  13. MOXIBENE [Concomitant]
     Indication: HYPERTENSION
     Dates: start: 20080114
  14. EPO NEORECORMON [Concomitant]
     Indication: ANAEMIA
     Dosage: FORM: 10000 IE
     Dates: start: 20080111
  15. DEXIBUPROFEN [Concomitant]
     Indication: PAIN
     Dates: start: 20080114
  16. QUETIAPINE [Concomitant]
     Indication: DEPRESSION
     Dates: start: 20080326
  17. MAGNOSOLV GRANULATE [Concomitant]
     Indication: DRUG USE FOR UNKNOWN INDICATION
     Dates: start: 20080118

REACTIONS (3)
  - DECUBITUS ULCER [None]
  - FALL [None]
  - FEMUR FRACTURE [None]
